FAERS Safety Report 23043471 (Version 1)
Quarter: 2023Q4

REPORT INFORMATION
  Report Type: Spontaneous
  Country: PT (occurrence: PT)
  Receive Date: 20231009
  Receipt Date: 20231009
  Transmission Date: 20240110
  Serious: Yes (Hospitalization, Other)
  Sender: FDA-Public Use
  Company Number: PT-VIIV HEALTHCARE ULC-PT2023EME134972

PATIENT

DRUGS (1)
  1. ABACAVIR [Suspect]
     Active Substance: ABACAVIR
     Indication: Antiretroviral therapy
     Dosage: UNK

REACTIONS (7)
  - Pneumonia bacterial [Unknown]
  - Pneumonia [Unknown]
  - Organising pneumonia [Recovering/Resolving]
  - Asthenia [Unknown]
  - Weight decreased [Unknown]
  - Dyspnoea [Unknown]
  - Toxicity to various agents [Unknown]
